FAERS Safety Report 12833711 (Version 4)
Quarter: 2017Q2

REPORT INFORMATION
  Report Type: Spontaneous
  Country: IL (occurrence: IL)
  Receive Date: 20161010
  Receipt Date: 20170519
  Transmission Date: 20170830
  Serious: Yes (Hospitalization, Other)
  Sender: FDA-Public Use
  Company Number: IL-NOVOPROD-513438

PATIENT
  Age: 56 Year
  Sex: Male
  Weight: 104 kg

DRUGS (21)
  1. NOVONORM [Suspect]
     Active Substance: REPAGLINIDE
     Indication: TYPE 2 DIABETES MELLITUS
     Dosage: 0.5 MG, BID
     Route: 048
     Dates: start: 20120405, end: 20160710
  2. CADEX                              /00639302/ [Concomitant]
     Dosage: UNK
     Route: 065
     Dates: start: 20120405
  3. GLUCOMIN [Concomitant]
     Active Substance: METFORMIN HYDROCHLORIDE
     Dosage: UNK
     Route: 065
     Dates: start: 20120405
  4. BEZALIP [Concomitant]
     Active Substance: BEZAFIBRATE
     Dosage: UNK
     Route: 065
     Dates: start: 20120405
  5. LOSEC [Concomitant]
     Active Substance: OMEPRAZOLE
     Dosage: UNK
     Route: 065
     Dates: start: 20120405
  6. BOCOCIZUMAB [Concomitant]
     Active Substance: BOCOCIZUMAB
     Dosage: 150 MG EVERY TWO WEEKS
     Route: 058
     Dates: start: 20150927, end: 20151122
  7. FUSID                              /00032601/ [Concomitant]
     Dosage: UNK
     Route: 065
     Dates: start: 20130704, end: 20160710
  8. VASODIP [Concomitant]
     Active Substance: LERCANIDIPINE HYDROCHLORIDE
     Dosage: UNK
     Route: 065
     Dates: start: 20130704
  9. ISOKET [Concomitant]
     Active Substance: ISOSORBIDE DINITRATE
     Dosage: UNK
     Route: 065
     Dates: start: 20120405
  10. GENTEAL                            /00445101/ [Concomitant]
     Active Substance: HYPROMELLOSE 2910 (4000 MPA.S)
     Dosage: UNK
     Route: 065
     Dates: start: 20151216
  11. NEOBLOC [Concomitant]
     Dosage: UNK
     Route: 065
     Dates: start: 20130704
  12. ZYLOL [Concomitant]
     Dosage: UNK
     Route: 065
     Dates: start: 20120405
  13. ASPIRIN                            /00002701/ [Concomitant]
     Active Substance: ASPIRIN
     Dosage: UNK
     Route: 065
     Dates: start: 20120405
  14. ALPHAPRESS                         /00007602/ [Concomitant]
     Dosage: UNK
     Route: 065
     Dates: start: 20120405
  15. DIOVAN [Concomitant]
     Active Substance: VALSARTAN
     Dosage: UNK
     Route: 065
     Dates: start: 20120405
  16. TRITACE [Concomitant]
     Active Substance: RAMIPRIL
     Dosage: UNK
     Route: 065
     Dates: start: 20120405, end: 20160710
  17. LIPITOR [Concomitant]
     Active Substance: ATORVASTATIN CALCIUM
     Dosage: UNK
     Route: 065
     Dates: start: 20120405
  18. ALDACTONE [Concomitant]
     Active Substance: SPIRONOLACTONE
     Dosage: UNK
     Route: 065
     Dates: start: 20120405, end: 20160710
  19. NORMOPRESAN [Concomitant]
     Dosage: UNK
     Route: 065
     Dates: start: 20120408
  20. STUNARONE [Concomitant]
     Dosage: UNK
     Route: 065
     Dates: start: 20130704
  21. PLAVIX [Concomitant]
     Active Substance: CLOPIDOGREL BISULFATE
     Dosage: UNK
     Route: 065
     Dates: start: 20151224

REACTIONS (3)
  - Chronic kidney disease [Recovered/Resolved]
  - Anaemia [Recovered/Resolved]
  - Hypoglycaemia [Recovered/Resolved]

NARRATIVE: CASE EVENT DATE: 20160710
